FAERS Safety Report 10175659 (Version 1)
Quarter: 2014Q2

REPORT INFORMATION
  Report Type: Spontaneous
  Country: BR (occurrence: BR)
  Receive Date: 20140516
  Receipt Date: 20140516
  Transmission Date: 20141212
  Serious: Yes (Death, Hospitalization, Other)
  Sender: FDA-Public Use
  Company Number: BR-AMGEN INC.-BRASP2014036095

PATIENT
  Age: 71 Year
  Sex: Male

DRUGS (1)
  1. ENBREL [Suspect]
     Indication: RHEUMATOID ARTHRITIS
     Dosage: UNK
     Route: 065

REACTIONS (5)
  - Cardiac disorder [Fatal]
  - Vomiting [Recovering/Resolving]
  - Infarction [Unknown]
  - Diabetes mellitus [Unknown]
  - Blood cholesterol abnormal [Unknown]
